FAERS Safety Report 11662674 (Version 2)
Quarter: 2015Q4

REPORT INFORMATION
  Report Type: Spontaneous
  Country: US (occurrence: US)
  Receive Date: 20151027
  Receipt Date: 20151110
  Transmission Date: 20160304
  Serious: Yes (Hospitalization, Other)
  Sender: FDA-Public Use
  Company Number: US-ROCHE-ITM201503IM011028

PATIENT
  Age: 85 Year
  Sex: Female
  Weight: 49.03 kg

DRUGS (3)
  1. ESBRIET [Suspect]
     Active Substance: PIRFENIDONE
     Indication: IDIOPATHIC PULMONARY FIBROSIS
     Route: 048
     Dates: start: 20150209
  2. ESBRIET [Suspect]
     Active Substance: PIRFENIDONE
     Dosage: TOTAL 1602 MG DAILY PO 2 CAPS PO TID
     Route: 048
     Dates: start: 20150206
  3. ASPIRIN. [Concomitant]
     Active Substance: ASPIRIN

REACTIONS (5)
  - Gastritis [Unknown]
  - Fall [Unknown]
  - Hip fracture [Unknown]
  - Lower limb fracture [Unknown]
  - Oesophagitis [Unknown]

NARRATIVE: CASE EVENT DATE: 20150830
